FAERS Safety Report 14778329 (Version 1)
Quarter: 2018Q2

REPORT INFORMATION
  Report Type: Spontaneous
  Country: US (occurrence: US)
  Receive Date: 20180419
  Receipt Date: 20180419
  Transmission Date: 20180711
  Serious: No
  Sender: FDA-Public Use
  Company Number: US-PERRIGO-17US023536

PATIENT
  Age: 55 Year
  Sex: Female

DRUGS (2)
  1. CLOBETASOL PROPIONATE RX 0.05% 9F0 [Suspect]
     Active Substance: CLOBETASOL PROPIONATE
     Dosage: UNKNOWN, SINGLE
     Route: 061
     Dates: start: 20170506, end: 20170506
  2. CLOBETASOL PROPIONATE RX 0.05% 9F0 [Suspect]
     Active Substance: CLOBETASOL PROPIONATE
     Indication: ACNE
     Dosage: UNKNOWN, SINGLE
     Route: 061
     Dates: start: 20170503, end: 20170503

REACTIONS (2)
  - Off label use [Recovered/Resolved]
  - Wrong technique in product usage process [Recovered/Resolved]

NARRATIVE: CASE EVENT DATE: 20170503
